FAERS Safety Report 14868752 (Version 1)
Quarter: 2018Q2

REPORT INFORMATION
  Report Type: Spontaneous
  Country: US (occurrence: US)
  Receive Date: 20180509
  Receipt Date: 20180509
  Transmission Date: 20180711
  Serious: No
  Sender: FDA-Public Use
  Company Number: US-PFIZER INC-2018186501

PATIENT
  Age: 14 Year
  Sex: Male
  Weight: 47.63 kg

DRUGS (2)
  1. FLUTICASONE PROPIONATE. [Concomitant]
     Active Substance: FLUTICASONE PROPIONATE
     Indication: ECZEMA
     Dosage: 1 DF, 2X/DAY (0.05% COMPOUND CREAM APPLIED TOPICALLY TO AFFECTED AREAS ON FACE AND BODY TWICE DAILY)
     Route: 061
     Dates: start: 20170121
  2. EUCRISA [Suspect]
     Active Substance: CRISABOROLE
     Indication: ECZEMA
     Dosage: 1 DF, 1X/DAY
     Dates: start: 20180413

REACTIONS (4)
  - Condition aggravated [Not Recovered/Not Resolved]
  - Pain [Not Recovered/Not Resolved]
  - Intentional product misuse [Unknown]
  - Erythema [Not Recovered/Not Resolved]
